FAERS Safety Report 7743401-6 (Version None)
Quarter: 2011Q3

REPORT INFORMATION
  Report Type: 
  Country: None (occurrence: None)
  Receive Date: 20110912
  Receipt Date: 20110831
  Transmission Date: 20111222
  Serious: Yes (Other)
  Sender: FDA-Public Use
  Company Number: PHFR2011GB05151

PATIENT
  Age: 13 Year
  Sex: Male
  Weight: 51 kg

DRUGS (3)
  1. CONCERTA [Suspect]
     Indication: ATTENTION DEFICIT/HYPERACTIVITY DISORDER
     Dosage: 36 MG, UNK
     Route: 048
     Dates: start: 20100201, end: 20110712
  2. MELATONIN [Concomitant]
     Indication: SLEEP DISORDER
     Dosage: 6 MG, UNK
     Route: 048
     Dates: start: 20080401
  3. METHYLPHENIDATE [Suspect]
     Dosage: 10 MG, UNK
     Route: 048
     Dates: start: 20100901, end: 20110712

REACTIONS (1)
  - NEUTROPENIA [None]
